FAERS Safety Report 5018811-0 (Version None)
Quarter: 2006Q2

REPORT INFORMATION
  Report Type: 
  Country: None (occurrence: None)
  Receive Date: 20060531
  Receipt Date: 20060515
  Transmission Date: 20061013
  Serious: Yes (Other)
  Sender: FDA-Public Use
  Company Number: IMP_2250_2006

PATIENT
  Age: 57 Year
  Sex: Female
  Weight: 83.9154 kg

DRUGS (3)
  1. CLARITIN-D [Suspect]
     Indication: SINUSITIS
     Dosage: DF QDAY
     Dates: start: 20060416, end: 20060418
  2. NASONEX [Concomitant]
     Indication: SINUS CONGESTION
  3. SALINEX NASAL [Concomitant]
     Indication: EAR CONGESTION

REACTIONS (5)
  - DISORIENTATION [None]
  - HYPOAESTHESIA [None]
  - PARAESTHESIA [None]
  - SPEECH DISORDER [None]
  - THINKING ABNORMAL [None]
